FAERS Safety Report 5812510-0 (Version None)
Quarter: 2008Q3

REPORT INFORMATION
  Report Type: 
  Country: None (occurrence: None)
  Receive Date: 20080717
  Receipt Date: 20080707
  Transmission Date: 20090109
  Serious: Yes (Other)
  Sender: FDA-Public Use
  Company Number: US-JNJFOC-20080701701

PATIENT
  Sex: Female

DRUGS (1)
  1. REMICADE [Suspect]
     Indication: RHEUMATOID ARTHRITIS
     Route: 042

REACTIONS (6)
  - BURNING SENSATION [None]
  - COSTOCHONDRITIS [None]
  - DYSPNOEA [None]
  - KERATITIS [None]
  - LIMB DISCOMFORT [None]
  - OROPHARYNGEAL PAIN [None]
